FAERS Safety Report 8195387-0 (Version None)
Quarter: 2012Q1

REPORT INFORMATION
  Report Type: 
  Country: None (occurrence: None)
  Receive Date: 20120308
  Receipt Date: 20120301
  Transmission Date: 20120608
  Serious: Yes (Other)
  Sender: FDA-Public Use
  Company Number: BA-GLAXOSMITHKLINE-B0786484A

PATIENT
  Age: 61 Year
  Sex: Female

DRUGS (1)
  1. CEFUROXIME [Suspect]
     Indication: PNEUMONIA
     Dosage: 500MG PER DAY
     Route: 048
     Dates: start: 20120201, end: 20120201

REACTIONS (4)
  - ASPHYXIA [None]
  - OEDEMA [None]
  - OROPHARYNGEAL DISCOMFORT [None]
  - DYSPNOEA [None]
